FAERS Safety Report 9868130 (Version 1)
Quarter: 2014Q1

REPORT INFORMATION
  Report Type: Spontaneous
  Country: DE (occurrence: DE)
  Receive Date: 20140204
  Receipt Date: 20140204
  Transmission Date: 20141002
  Serious: Yes (Congenital Anomaly, Other)
  Sender: FDA-Public Use
  Company Number: DE-TEVA-458973GER

PATIENT
  Age: 1 Day
  Sex: Male

DRUGS (3)
  1. DOCETAXEL [Suspect]
     Route: 064
  2. CARBOPLATIN [Suspect]
     Route: 064
  3. HERCEPTIN [Suspect]
     Route: 064

REACTIONS (5)
  - Pulmonary artery stenosis congenital [Unknown]
  - Foetal growth restriction [Unknown]
  - Thrombocytopenia neonatal [Recovered/Resolved]
  - Patent ductus arteriosus [Recovered/Resolved]
  - Atrial septal defect [Unknown]
